FAERS Safety Report 12223132 (Version 1)
Quarter: 2016Q1

REPORT INFORMATION
  Report Type: Spontaneous
  Country: US (occurrence: US)
  Receive Date: 20160330
  Receipt Date: 20160330
  Transmission Date: 20160526
  Serious: Yes (Other)
  Sender: FDA-Public Use
  Company Number: US-MDT-ADR-2016-00590

PATIENT
  Age: 61 Year
  Sex: Female

DRUGS (3)
  1. FENTANYL. [Suspect]
     Active Substance: FENTANYL
     Route: 037
  2. CLONIDINE. [Suspect]
     Active Substance: CLONIDINE
     Route: 037
  3. BACLOFEN, UNKNOWN [Suspect]
     Active Substance: BACLOFEN
     Route: 037

REACTIONS (5)
  - Spinal fracture [Not Recovered/Not Resolved]
  - Osteoporosis [Not Recovered/Not Resolved]
  - Spinal compression fracture [Not Recovered/Not Resolved]
  - Pain [Not Recovered/Not Resolved]
  - Compression fracture [Not Recovered/Not Resolved]
